FAERS Safety Report 8323061-6 (Version None)
Quarter: 2012Q2

REPORT INFORMATION
  Report Type: 
  Country: None (occurrence: None)
  Receive Date: 20120430
  Receipt Date: 20120425
  Transmission Date: 20120825
  Serious: Yes (Other)
  Sender: FDA-Public Use
  Company Number: US-TEVA-335102USA

PATIENT
  Sex: Female

DRUGS (1)
  1. COPAXONE [Suspect]
     Indication: MULTIPLE SCLEROSIS
     Dosage: 20 MILLIGRAM;
     Route: 058
     Dates: start: 20120303, end: 20120324

REACTIONS (5)
  - HYPOAESTHESIA ORAL [None]
  - CHEST PAIN [None]
  - CHEST DISCOMFORT [None]
  - HYPERSENSITIVITY [None]
  - URTICARIA [None]
